FAERS Safety Report 7775434-8 (Version None)
Quarter: 2011Q3

REPORT INFORMATION
  Report Type: 
  Country: None (occurrence: None)
  Receive Date: 20110923
  Receipt Date: 20110919
  Transmission Date: 20111222
  Serious: Yes (Death)
  Sender: FDA-Public Use
  Company Number: PHHY2011LB83982

PATIENT

DRUGS (1)
  1. EXELON [Suspect]
     Dosage: UNK UKN, UNK

REACTIONS (1)
  - DEATH [None]
